FAERS Safety Report 6065119-0 (Version None)
Quarter: 2009Q1

REPORT INFORMATION
  Report Type: 
  Country: None (occurrence: None)
  Receive Date: 20090204
  Receipt Date: 20090126
  Transmission Date: 20090719
  Serious: Yes (Death)
  Sender: FDA-Public Use
  Company Number: US-ELI_LILLY_AND_COMPANY-US200901005266

PATIENT
  Age: 48 Year
  Sex: Male

DRUGS (5)
  1. CIALIS [Suspect]
     Dosage: UNK, UNKNOWN
     Route: 065
  2. HYDROCODONE [Concomitant]
     Dosage: UNK, UNKNOWN
     Route: 065
  3. ALPRAZOLAM [Concomitant]
     Dosage: UNK, UNKNOWN
     Route: 065
  4. PROMETHAZINE [Concomitant]
     Dosage: UNK, UNKNOWN
     Route: 065
  5. RIBAVIRIN [Concomitant]
     Dosage: UNK, UNKNOWN
     Route: 065

REACTIONS (2)
  - COMPLETED SUICIDE [None]
  - INTENTIONAL OVERDOSE [None]
